FAERS Safety Report 9330112 (Version 4)
Quarter: 2014Q2

REPORT INFORMATION
  Report Type: Spontaneous
  Country: US (occurrence: US)
  Receive Date: 20130604
  Receipt Date: 20140401
  Transmission Date: 20141212
  Serious: Yes (Hospitalization, Disabling, Other)
  Sender: FDA-Public Use
  Company Number: US-009507513-1205USA04377

PATIENT
  Sex: Male
  Weight: 104.5 kg

DRUGS (6)
  1. FOSAMAX [Suspect]
     Indication: OSTEOPOROSIS
     Dosage: 70 MG, QW
     Route: 048
     Dates: start: 200210, end: 201008
  2. FOSAMAX [Suspect]
     Indication: OSTEOPOROSIS
     Route: 048
  3. CALCIUM (UNSPECIFIED) [Concomitant]
     Indication: OSTEOPOROSIS
     Dosage: 1500 MG, QD
     Route: 048
     Dates: start: 200210
  4. VITAMIN D (UNSPECIFIED) [Concomitant]
     Dosage: 150 MG, QD
     Dates: start: 200210
  5. OMEPRAZOLE [Concomitant]
     Dosage: UNK
     Route: 048
     Dates: start: 2002
  6. PREVACID [Concomitant]
     Dosage: UNK
     Dates: start: 2000

REACTIONS (29)
  - Intramedullary rod insertion [Unknown]
  - Low turnover osteopathy [Not Recovered/Not Resolved]
  - Intramedullary rod insertion [Unknown]
  - Spinal operation [Unknown]
  - Hip fracture [Unknown]
  - Fracture nonunion [Unknown]
  - Femur fracture [Not Recovered/Not Resolved]
  - Depression [Not Recovered/Not Resolved]
  - Hypogonadism male [Unknown]
  - Anxiety [Not Recovered/Not Resolved]
  - Adverse event [Unknown]
  - Osteopenia [Unknown]
  - Device failure [Unknown]
  - Infection [Unknown]
  - Impaired healing [Unknown]
  - Arthropathy [Unknown]
  - Arthritis [Unknown]
  - Radiculopathy [Not Recovered/Not Resolved]
  - Fracture nonunion [Unknown]
  - Irritable bowel syndrome [Unknown]
  - Epidural injection [Unknown]
  - Medical device removal [Unknown]
  - Spinal osteoarthritis [Unknown]
  - Sinus operation [Unknown]
  - Appendicectomy [Unknown]
  - Restless legs syndrome [Unknown]
  - Diabetes mellitus [Unknown]
  - Ear operation [Unknown]
  - Pain in extremity [Unknown]
